FAERS Safety Report 19155603 (Version 1)
Quarter: 2021Q2

REPORT INFORMATION
  Report Type: Spontaneous
  Country: US (occurrence: US)
  Receive Date: 20210420
  Receipt Date: 20210420
  Transmission Date: 20210717
  Serious: No
  Sender: FDA-Public Use
  Company Number: US-CADILA HEALTHCARE LIMITED-US-ZYDUS-062997

PATIENT

DRUGS (4)
  1. METOPROLOL 25 MILIGRAM TABLET EXTENDED RELEASE [Suspect]
     Active Substance: METOPROLOL
     Indication: SUPRAVENTRICULAR TACHYCARDIA
     Dosage: 25 MILLIGRAM, 2 TABLETS IN THE MORNING ,QD
     Route: 048
     Dates: start: 20210306, end: 20210307
  2. EZETIMIBE. [Concomitant]
     Active Substance: EZETIMIBE
     Indication: PRODUCT USED FOR UNKNOWN INDICATION
     Dosage: UNK
  3. PRAVACHOL [Concomitant]
     Active Substance: PRAVASTATIN SODIUM
     Indication: PRODUCT USED FOR UNKNOWN INDICATION
     Dosage: UNK
  4. METOPROLOL 25 MILIGRAM TABLET EXTENDED RELEASE [Suspect]
     Active Substance: METOPROLOL
     Indication: PRODUCT USE IN UNAPPROVED INDICATION
     Dosage: 25 MILLIGRAM, 1 TABLET AT NIGHT, QD
     Dates: start: 20210308

REACTIONS (2)
  - Dizziness [Recovered/Resolved]
  - Drug ineffective for unapproved indication [Recovered/Resolved]

NARRATIVE: CASE EVENT DATE: 20210306
